FAERS Safety Report 14895166 (Version 2)
Quarter: 2018Q3

REPORT INFORMATION
  Report Type: Spontaneous
  Country: US (occurrence: US)
  Receive Date: 20180515
  Receipt Date: 20180807
  Transmission Date: 20181010
  Serious: No
  Sender: FDA-Public Use
  Company Number: US-PFIZER INC-2018006502

PATIENT
  Age: 47 Year
  Sex: Female

DRUGS (33)
  1. ONDANSETRON HYDROCHLORIDE. [Concomitant]
     Active Substance: ONDANSETRON HYDROCHLORIDE
     Dosage: UNK
  2. PEPCID [Concomitant]
     Active Substance: FAMOTIDINE
     Dosage: UNK
     Route: 042
  3. DOCETAXEL. [Suspect]
     Active Substance: DOCETAXEL
     Dosage: UNK, CYCLIC (3RD CYCLE) (EVERY 3 WEEKS, 6 CYCLES)
     Dates: start: 20140527, end: 20140527
  4. HERCEPTIN [Suspect]
     Active Substance: TRASTUZUMAB
     Indication: INTRADUCTAL PROLIFERATIVE BREAST LESION
     Dosage: UNK UNK, CYCLIC (1ST CYCLE) (EVERY 3 WEEKS, 06 CYCLES)
     Dates: start: 20140416, end: 20140416
  5. HERCEPTIN [Suspect]
     Active Substance: TRASTUZUMAB
     Dosage: UNK, CYCLIC (3RD CYCLE) (EVERY 3 WEEKS, 6 CYCLES)
     Dates: start: 20140527, end: 20140527
  6. PARAPLATIN [Suspect]
     Active Substance: CARBOPLATIN
     Dosage: UNK, CYCLIC (3RD CYCLE) (EVERY 3 WEEKS, 6 CYCLES)
     Dates: start: 20140527, end: 20140527
  7. MOXIFLOXACIN HYDROCHLORIDE. [Concomitant]
     Active Substance: MOXIFLOXACIN HYDROCHLORIDE
     Dosage: UNK
  8. DOCETAXEL ACCORD [Suspect]
     Active Substance: DOCETAXEL
     Dosage: UNK, CYCLIC (4TH CYCLE) (EVERY 3 WEEKS, 6 CYCLES)
     Dates: start: 20140617, end: 20140617
  9. DOCETAXEL ACCORD [Suspect]
     Active Substance: DOCETAXEL
     Dosage: UNK, CYCLIC (5TH CYCLE) (EVERY 3 WEEKS, 6 CYCLES)
     Dates: start: 20140709, end: 20140709
  10. DEXAMETHASONE. [Concomitant]
     Active Substance: DEXAMETHASONE
     Dosage: UNK
  11. ALOXI [Concomitant]
     Active Substance: PALONOSETRON HYDROCHLORIDE
     Dosage: UNK
     Route: 040
  12. PARAPLATIN [Suspect]
     Active Substance: CARBOPLATIN
     Dosage: UNK, CYCLIC (2ND CYCLE) (EVERY 3 WEEKS, 6 CYCLES)
     Dates: start: 20140507, end: 20140507
  13. NEULASTA [Concomitant]
     Active Substance: PEGFILGRASTIM
     Dosage: UNK
  14. DOCETAXEL. [Suspect]
     Active Substance: DOCETAXEL
     Indication: INTRADUCTAL PROLIFERATIVE BREAST LESION
     Dosage: UNK UNK, CYCLIC (1ST CYCLE) (EVERY 3 WEEKS, 06 CYCLES)
     Dates: start: 20140416, end: 20140416
  15. HERCEPTIN [Suspect]
     Active Substance: TRASTUZUMAB
     Dosage: UNK, CYCLIC (6TH CYCLE) (EVERY 3 WEEKS, 6 CYCLES)
     Dates: start: 20140729, end: 20140729
  16. DOCETAXEL. [Suspect]
     Active Substance: DOCETAXEL
     Dosage: UNK, CYCLIC (6TH CYCLE) (EVERY 3 WEEKS, 6 CYCLES)
     Dates: start: 20140729, end: 20140729
  17. DOCETAXEL ACCORD [Suspect]
     Active Substance: DOCETAXEL
     Indication: INTRADUCTAL PROLIFERATIVE BREAST LESION
     Dosage: UNK UNK, CYCLIC (1ST CYCLE) (EVERY 3 WEEKS, 06 CYCLES)
     Dates: start: 20140416, end: 20140416
  18. TAXOL [Concomitant]
     Active Substance: PACLITAXEL
     Indication: CHEMOTHERAPY
     Dosage: UNK
  19. DOCETAXEL. [Suspect]
     Active Substance: DOCETAXEL
     Dosage: UNK, CYCLIC (4TH CYCLE) (EVERY 3 WEEKS, 6 CYCLES)
     Dates: start: 20140617, end: 20140617
  20. DOCETAXEL ACCORD [Suspect]
     Active Substance: DOCETAXEL
     Dosage: UNK, CYCLIC (3RD CYCLE) (EVERY 3 WEEKS, 6 CYCLES)
     Dates: start: 20140527, end: 20140527
  21. DOCETAXEL ACCORD [Suspect]
     Active Substance: DOCETAXEL
     Dosage: UNK, CYCLIC (6TH CYCLE) (EVERY 3 WEEKS, 6 CYCLES)
     Dates: start: 20140729, end: 20140729
  22. PARAPLATIN [Suspect]
     Active Substance: CARBOPLATIN
     Indication: INTRADUCTAL PROLIFERATIVE BREAST LESION
     Dosage: UNK UNK, CYCLIC (1ST CYCLE) (EVERY 3 WEEKS, 06 CYCLES)
     Dates: start: 20140416, end: 20140416
  23. PARAPLATIN [Suspect]
     Active Substance: CARBOPLATIN
     Dosage: UNK, CYCLIC (5TH CYCLE) (EVERY 3 WEEKS, 6 CYCLES)
     Dates: start: 20140708, end: 20140708
  24. PARAPLATIN [Suspect]
     Active Substance: CARBOPLATIN
     Dosage: UNK, CYCLIC (6TH CYCLE) (EVERY 3 WEEKS, 6 CYCLES)
     Dates: start: 20140729, end: 20140729
  25. EMEND [Concomitant]
     Active Substance: APREPITANT
     Dosage: UNK
     Route: 042
  26. DOCETAXEL. [Suspect]
     Active Substance: DOCETAXEL
     Dosage: UNK, CYCLIC (2ND CYCLE) (EVERY 3 WEEKS, 6 CYCLES)
     Dates: start: 20140508, end: 20140508
  27. DOCETAXEL. [Suspect]
     Active Substance: DOCETAXEL
     Dosage: UNK, CYCLIC (5TH CYCLE) (EVERY 3 WEEKS, 6 CYCLES)
     Dates: start: 20140709, end: 20140709
  28. DOCETAXEL ACCORD [Suspect]
     Active Substance: DOCETAXEL
     Dosage: UNK, CYCLIC (2ND CYCLE) (EVERY 3 WEEKS, 6 CYCLES)
     Dates: start: 20140508, end: 20140508
  29. HERCEPTIN [Suspect]
     Active Substance: TRASTUZUMAB
     Dosage: UNK, CYCLIC (2ND CYCLE) (EVERY 3 WEEKS, 6 CYCLES)
     Dates: start: 20140507, end: 20140507
  30. HERCEPTIN [Suspect]
     Active Substance: TRASTUZUMAB
     Dosage: UNK, CYCLIC (4TH CYCLE) (EVERY 3 WEEKS, 6 CYCLES)
     Dates: start: 20140617, end: 20140617
  31. HERCEPTIN [Suspect]
     Active Substance: TRASTUZUMAB
     Dosage: UNK, CYCLIC (5TH CYCLE) (EVERY 3 WEEKS, 6 CYCLES)
     Dates: start: 20140708, end: 20140708
  32. PARAPLATIN [Suspect]
     Active Substance: CARBOPLATIN
     Dosage: UNK, CYCLIC (4TH CYCLE) (EVERY 3 WEEKS, 6 CYCLES)
     Dates: start: 20140617, end: 20140617
  33. ZOFRAN [Concomitant]
     Active Substance: ONDANSETRON HYDROCHLORIDE
     Dosage: UNK

REACTIONS (5)
  - Alopecia [Not Recovered/Not Resolved]
  - Madarosis [Not Recovered/Not Resolved]
  - Hair disorder [Not Recovered/Not Resolved]
  - Hair colour changes [Not Recovered/Not Resolved]
  - Hair texture abnormal [Not Recovered/Not Resolved]

NARRATIVE: CASE EVENT DATE: 20140507
